FAERS Safety Report 25538680 (Version 3)
Quarter: 2025Q3

REPORT INFORMATION
  Report Type: Spontaneous
  Country: US (occurrence: US)
  Receive Date: 20250710
  Receipt Date: 20250812
  Transmission Date: 20251021
  Serious: Yes (Death, Hospitalization, Other)
  Sender: SANOFI AVENTIS
  Company Number: US-SA-2025SA191482

PATIENT
  Age: 62 Year
  Sex: Male

DRUGS (36)
  1. REZUROCK [Suspect]
     Active Substance: BELUMOSUDIL
     Indication: Chronic graft versus host disease
     Dosage: 200 MG, QD
  2. BECLOMETHASONE DIPROPIONATE [Concomitant]
     Active Substance: BECLOMETHASONE DIPROPIONATE
  3. BECLOMETHASONE DIPROPIONATE [Concomitant]
     Active Substance: BECLOMETHASONE DIPROPIONATE
  4. VITAMIN D3 [Concomitant]
     Active Substance: CHOLECALCIFEROL
  5. BIOTIN [Concomitant]
     Active Substance: BIOTIN
  6. BIOTIN [Concomitant]
     Active Substance: BIOTIN
  7. CARVEDILOL [Concomitant]
     Active Substance: CARVEDILOL
  8. CARVEDILOL [Concomitant]
     Active Substance: CARVEDILOL
  9. CEFDINIR [Concomitant]
     Active Substance: CEFDINIR
  10. CEFDINIR [Concomitant]
     Active Substance: CEFDINIR
  11. ZYPREXA [Concomitant]
     Active Substance: OLANZAPINE
  12. VALTREX [Concomitant]
     Active Substance: VALACYCLOVIR HYDROCHLORIDE
  13. URSODIOL [Concomitant]
     Active Substance: URSODIOL
  14. TACROLIMUS [Concomitant]
     Active Substance: TACROLIMUS
  15. SOLU-CORTEF [Concomitant]
     Active Substance: HYDROCORTISONE SODIUM SUCCINATE
  16. ROBAXIN [Concomitant]
     Active Substance: METHOCARBAMOL
  17. RESTORIL [Concomitant]
     Active Substance: TEMAZEPAM
  18. POTASSIUM [Concomitant]
     Active Substance: POTASSIUM
  19. PENICILLIN V [Concomitant]
     Active Substance: PENICILLIN V
  20. PANTOPRAZOLE [Concomitant]
     Active Substance: PANTOPRAZOLE
  21. MILK OF MAGNESIA [Concomitant]
     Active Substance: MAGNESIUM HYDROXIDE
  22. MEPRON [Concomitant]
     Active Substance: ATOVAQUONE
  23. MAGNESIUM OXIDE [Concomitant]
     Active Substance: MAGNESIUM OXIDE
  24. LEXAPRO [Concomitant]
     Active Substance: ESCITALOPRAM OXALATE
  25. KEPPRA [Concomitant]
     Active Substance: LEVETIRACETAM
  26. FOLIC ACID [Concomitant]
     Active Substance: FOLIC ACID
  27. ENTRESTO [Concomitant]
     Active Substance: SACUBITRIL\VALSARTAN
  28. DILAUDID [Concomitant]
     Active Substance: HYDROMORPHONE HYDROCHLORIDE
  29. CRESTOR [Concomitant]
     Active Substance: ROSUVASTATIN CALCIUM
  30. CHORIONIC GONADOTROPIN [Concomitant]
     Active Substance: CHORIOGONADOTROPIN ALFA
  31. MIRALAX [Concomitant]
     Active Substance: POLYETHYLENE GLYCOL 3350
  32. REFRESH CLASSIC [Concomitant]
     Active Substance: POLYVINYL ALCOHOL\POVIDONE
  33. POTASSIUM CITRATE [Concomitant]
     Active Substance: POTASSIUM CITRATE
  34. VENCLEXTA [Concomitant]
     Active Substance: VENETOCLAX
  35. BENADRYL [Concomitant]
     Active Substance: DIPHENHYDRAMINE HYDROCHLORIDE
  36. PROCHLORPERAZINE MALEATE [Concomitant]
     Active Substance: PROCHLORPERAZINE MALEATE

REACTIONS (3)
  - Death [Fatal]
  - Hospitalisation [Unknown]
  - Inappropriate schedule of product administration [Unknown]
